FAERS Safety Report 10066438 (Version 2)
Quarter: 2014Q2

REPORT INFORMATION
  Report Type: Spontaneous
  Country: US (occurrence: US)
  Receive Date: 20140408
  Receipt Date: 20140603
  Transmission Date: 20141212
  Serious: No
  Sender: FDA-Public Use
  Company Number: US-B.I. PHARMACEUTICALS,INC./RIDGEFIELD-2014-BI-13630BP

PATIENT
  Age: 52 Year
  Sex: Male
  Weight: 82 kg

DRUGS (1)
  1. COMBIVENT [Suspect]
     Indication: ASTHMA
     Dosage: DOSE PER APPLICATION : 20 MCG / 100 MCG; DAILY DOSE: 80 MCG/200 MCG
     Route: 055
     Dates: start: 201112

REACTIONS (4)
  - Off label use [Unknown]
  - Drug ineffective [Not Recovered/Not Resolved]
  - Product quality issue [Recovered/Resolved]
  - Product quality issue [Recovered/Resolved]
